FAERS Safety Report 6444748-6 (Version None)
Quarter: 2009Q4

REPORT INFORMATION
  Report Type: 
  Country: None (occurrence: None)
  Receive Date: 20091118
  Receipt Date: 20091005
  Transmission Date: 20100525
  Serious: Yes (Life-Threatening, Hospitalization)
  Sender: FDA-Public Use
  Company Number: B0586241A

PATIENT
  Sex: Female
  Weight: 59 kg

DRUGS (2)
  1. ARIXTRA [Suspect]
     Indication: VENOUS THROMBOSIS
     Route: 058
     Dates: start: 20090501, end: 20090515
  2. PREVISCAN [Suspect]
     Indication: VENOUS THROMBOSIS
     Route: 048
     Dates: start: 20090501, end: 20090515

REACTIONS (11)
  - ACTIVATED PARTIAL THROMBOPLASTIN TIME PROLONGED [None]
  - ANURIA [None]
  - HAEMATOMA [None]
  - HAEMOGLOBIN DECREASED [None]
  - MUSCLE HAEMORRHAGE [None]
  - PNEUMONIA STAPHYLOCOCCAL [None]
  - PROTHROMBIN TIME SHORTENED [None]
  - RENAL FAILURE [None]
  - RETROPERITONEAL HAEMATOMA [None]
  - SEPTIC SHOCK [None]
  - URINARY TRACT INFECTION [None]
